FAERS Safety Report 8534816-7 (Version None)
Quarter: 2012Q3

REPORT INFORMATION
  Report Type: 
  Country: None (occurrence: None)
  Receive Date: 20120711
  Receipt Date: 20120705
  Transmission Date: 20120928
  Serious: Yes (Other)
  Sender: FDA-Public Use
  Company Number: DKLU1072164

PATIENT
  Age: 27 Year
  Sex: Male

DRUGS (12)
  1. ERYTHROMYCIN [Concomitant]
  2. SPIRIVA [Concomitant]
  3. VANCENASE [Concomitant]
  4. TEGRETOL [Concomitant]
  5. ADVAIR HFA [Concomitant]
  6. VITAMIN B COMPLEX (VITAMIN B COMPLEX) [Concomitant]
  7. NEURONTIN [Concomitant]
  8. LAMICTAL [Concomitant]
  9. SABRIL [Suspect]
     Indication: GRAND MAL CONVULSION
  10. DEPAKOTE [Concomitant]
  11. DILANTIN [Concomitant]
  12. FELBATOL [Concomitant]

REACTIONS (2)
  - RETINAL TOXICITY [None]
  - VISUAL FIELD DEFECT [None]
